FAERS Safety Report 6657822-6 (Version None)
Quarter: 2010Q1

REPORT INFORMATION
  Report Type: 
  Country: None (occurrence: None)
  Receive Date: 20100330
  Receipt Date: 20100324
  Transmission Date: 20100710
  Serious: Yes (Hospitalization)
  Sender: FDA-Public Use
  Company Number: US-B.I. PHARMACEUTICALS,INC./RIDGEFIELD-2010-BP-02209BP

PATIENT
  Sex: Female
  Weight: 48.53 kg

DRUGS (4)
  1. MIRAPEX [Suspect]
     Indication: PARKINSON'S DISEASE
     Route: 048
     Dates: start: 20020318
  2. MIRALAX [Concomitant]
     Indication: CONSTIPATION
  3. SEROQUEL [Concomitant]
     Indication: ANXIETY
     Dosage: 150 MG
  4. CLONAZEPAM [Concomitant]
     Indication: RAPID EYE MOVEMENTS SLEEP ABNORMAL
     Dosage: 0.75 MG

REACTIONS (9)
  - ANXIETY [None]
  - ASTHENIA [None]
  - EMOTIONAL DISTRESS [None]
  - MAJOR DEPRESSION [None]
  - MENTAL IMPAIRMENT [None]
  - OBSESSIVE-COMPULSIVE DISORDER [None]
  - PAIN [None]
  - PANIC ATTACK [None]
  - PATHOLOGICAL GAMBLING [None]
